FAERS Safety Report 21377280 (Version 1)
Quarter: 2022Q3

REPORT INFORMATION
  Report Type: Spontaneous
  Country: JP (occurrence: JP)
  Receive Date: 20220926
  Receipt Date: 20220926
  Transmission Date: 20221026
  Serious: Yes (Death)
  Sender: FDA-Public Use
  Company Number: JP-ELI_LILLY_AND_COMPANY-JP202209010496

PATIENT
  Age: 1 Year
  Sex: Male
  Weight: 4.4 kg

DRUGS (32)
  1. TADALAFIL [Suspect]
     Active Substance: TADALAFIL
     Indication: Pulmonary arterial hypertension
     Dosage: 4 MG, UNKNOWN
     Route: 065
  2. TADALAFIL [Suspect]
     Active Substance: TADALAFIL
     Dosage: 10 MG, DAILY
     Route: 065
     Dates: end: 20200131
  3. UPTRAVI [Suspect]
     Active Substance: SELEXIPAG
     Indication: Pulmonary arterial hypertension
     Dosage: 0.12 MG, BID
     Route: 048
     Dates: start: 20190521, end: 20190701
  4. UPTRAVI [Suspect]
     Active Substance: SELEXIPAG
     Dosage: 0.024 MG, BID
     Route: 048
     Dates: start: 20190702, end: 20190721
  5. UPTRAVI [Suspect]
     Active Substance: SELEXIPAG
     Dosage: 0.036 MG, BID
     Route: 048
     Dates: start: 20190722, end: 20190728
  6. UPTRAVI [Suspect]
     Active Substance: SELEXIPAG
     Dosage: 0.048 MG, BID
     Route: 048
     Dates: start: 20190729, end: 20190730
  7. UPTRAVI [Suspect]
     Active Substance: SELEXIPAG
     Dosage: 0.044 MG, BID
     Route: 048
     Dates: start: 20190731, end: 20190731
  8. UPTRAVI [Suspect]
     Active Substance: SELEXIPAG
     Dosage: 0.036 MG, BID
     Route: 048
     Dates: start: 20190801, end: 20190818
  9. UPTRAVI [Suspect]
     Active Substance: SELEXIPAG
     Dosage: 0.04 MG, BID
     Route: 048
     Dates: start: 20190819, end: 20190825
  10. UPTRAVI [Suspect]
     Active Substance: SELEXIPAG
     Dosage: 0.044 MG, BID
     Route: 048
     Dates: start: 20190826, end: 20190904
  11. UPTRAVI [Suspect]
     Active Substance: SELEXIPAG
     Dosage: 0.048 MG, BID
     Route: 048
     Dates: start: 20190905, end: 20190911
  12. UPTRAVI [Suspect]
     Active Substance: SELEXIPAG
     Dosage: 0.052 MG, BID
     Route: 048
     Dates: start: 20190912, end: 20190923
  13. UPTRAVI [Suspect]
     Active Substance: SELEXIPAG
     Dosage: 0.056 MG, BID
     Route: 048
     Dates: start: 20190924, end: 20190927
  14. UPTRAVI [Suspect]
     Active Substance: SELEXIPAG
     Dosage: 0.06 MG, BID
     Route: 048
     Dates: start: 20190928, end: 20191002
  15. UPTRAVI [Suspect]
     Active Substance: SELEXIPAG
     Dosage: 0.064 MG, BID
     Route: 048
     Dates: start: 20191003, end: 20191009
  16. UPTRAVI [Suspect]
     Active Substance: SELEXIPAG
     Dosage: 0.068 MG, BID
     Route: 048
     Dates: start: 20191010, end: 20191017
  17. UPTRAVI [Suspect]
     Active Substance: SELEXIPAG
     Dosage: 0.072 MG, BID
     Route: 048
     Dates: start: 20191018, end: 20200131
  18. AMBRISENTAN [Concomitant]
     Active Substance: AMBRISENTAN
     Indication: Pulmonary arterial hypertension
     Dosage: 1 MG
     Dates: end: 20200131
  19. LEVOTHYROXINE [Concomitant]
     Active Substance: LEVOTHYROXINE
     Indication: Product used for unknown indication
     Dosage: 10 MG
     Dates: end: 20200131
  20. CORTRIL [Concomitant]
     Active Substance: HYDROCORTISONE
     Indication: Product used for unknown indication
     Dosage: 10 MG
  21. CORTRIL [Concomitant]
     Active Substance: HYDROCORTISONE
     Dosage: 9 MG
     Dates: end: 20200131
  22. LASIX [Concomitant]
     Active Substance: FUROSEMIDE
     Indication: Product used for unknown indication
     Dosage: 15 MG
  23. ALDACTONE [Concomitant]
     Active Substance: SPIRONOLACTONE
     Indication: Product used for unknown indication
     Dosage: 15 MG
  24. ALDACTONE [Concomitant]
     Active Substance: SPIRONOLACTONE
     Dosage: 20 MG
  25. SAMSCA [Concomitant]
     Active Substance: TOLVAPTAN
     Indication: Product used for unknown indication
     Dosage: 0.45 MG
  26. SAMSCA [Concomitant]
     Active Substance: TOLVAPTAN
     Dosage: 1.8 MG
     Dates: end: 20200131
  27. POTASSIUM GLUCONATE [Concomitant]
     Active Substance: POTASSIUM GLUCONATE
     Indication: Product used for unknown indication
     Dosage: 1.2 MG
  28. POTASSIUM GLUCONATE [Concomitant]
     Active Substance: POTASSIUM GLUCONATE
     Dosage: 0.6 MG
     Dates: end: 20200131
  29. FLOLAN [Concomitant]
     Active Substance: EPOPROSTENOL SODIUM
     Indication: Pulmonary arterial hypertension
     Dosage: UNK
     Dates: start: 20191024
  30. CERCINE [Concomitant]
     Active Substance: DIAZEPAM
     Indication: Product used for unknown indication
     Dosage: 1.8 MG
     Dates: end: 20200131
  31. TRICHLORMETHIAZIDE [Concomitant]
     Active Substance: TRICHLORMETHIAZIDE
     Indication: Product used for unknown indication
     Dosage: 0.25 MG
     Dates: end: 20200131
  32. MAGNESIUM OXIDE [Concomitant]
     Active Substance: MAGNESIUM OXIDE
     Indication: Product used for unknown indication
     Dosage: 60 MG
     Dates: end: 20200131

REACTIONS (2)
  - Hypotension [Fatal]
  - Pulmonary arterial hypertension [Fatal]

NARRATIVE: CASE EVENT DATE: 20200131
